FAERS Safety Report 9664109 (Version 1)
Quarter: 2013Q4

REPORT INFORMATION
  Report Type: Spontaneous
  Country: US (occurrence: US)
  Receive Date: 20131101
  Receipt Date: 20131101
  Transmission Date: 20140711
  Serious: No
  Sender: FDA-Public Use
  Company Number: US-JNJFOC-20131016368

PATIENT
  Age: 23 Year
  Sex: Male

DRUGS (4)
  1. INVEGA SUSTENNA [Suspect]
     Indication: SCHIZOAFFECTIVE DISORDER
     Dosage: MONTHLY
     Route: 030
     Dates: start: 201308
  2. COGENTIN [Concomitant]
     Route: 065
  3. BENADRYL [Concomitant]
     Route: 065
  4. HYDROXYZINE [Concomitant]
     Indication: ANXIETY
     Route: 065

REACTIONS (5)
  - Medication error [Unknown]
  - Drug dose omission [Unknown]
  - Psychotic disorder [Unknown]
  - Condition aggravated [Unknown]
  - Treatment noncompliance [Unknown]
